FAERS Safety Report 6669556-2 (Version None)
Quarter: 2010Q2

REPORT INFORMATION
  Report Type: 
  Country: None (occurrence: None)
  Receive Date: 20100406
  Receipt Date: 20100401
  Transmission Date: 20101027
  Serious: Yes (Hospitalization)
  Sender: FDA-Public Use
  Company Number: SG-PFIZER INC-2010041422

PATIENT
  Age: 80 Year
  Sex: Male

DRUGS (1)
  1. CELEBREX [Suspect]
     Indication: ARTHRALGIA
     Dosage: 400 MG, 1X/DAY
     Route: 048
     Dates: start: 20100226

REACTIONS (3)
  - ASTHENIA [None]
  - DECREASED APPETITE [None]
  - PALLOR [None]
